FAERS Safety Report 6711981-5 (Version None)
Quarter: 2010Q2

REPORT INFORMATION
  Report Type: 
  Country: None (occurrence: None)
  Receive Date: 20100505
  Receipt Date: 20100423
  Transmission Date: 20101027
  Serious: Yes (Other)
  Sender: FDA-Public Use
  Company Number: BR-PFIZER INC-2010051722

PATIENT
  Sex: Female

DRUGS (4)
  1. CHAMPIX [Suspect]
     Indication: NICOTINE DEPENDENCE
     Dosage: 1 TABLET, ONCE DAILY
     Route: 048
  2. FLUOXETINE [Concomitant]
     Dosage: UNK
     Dates: start: 20070101
  3. OLCADIL [Concomitant]
     Dosage: UNK
     Dates: start: 20080101
  4. TAMOXIFEN [Concomitant]
     Indication: BREAST CANCER
     Dosage: UNK
     Dates: start: 20080101

REACTIONS (3)
  - AGITATION [None]
  - DELIRIUM [None]
  - DEPRESSION [None]
